FAERS Safety Report 5052362-2 (Version None)
Quarter: 2006Q3

REPORT INFORMATION
  Report Type: 
  Country: None (occurrence: None)
  Receive Date: 20060717
  Receipt Date: 20060424
  Transmission Date: 20061208
  Serious: Yes (Hospitalization)
  Sender: FDA-Public Use
  Company Number: 2006AP01917

PATIENT
  Age: 12948 Day
  Sex: Female

DRUGS (8)
  1. SEROQUEL [Suspect]
     Route: 048
     Dates: start: 20030526, end: 20060314
  2. LOSIZOPILON [Suspect]
     Route: 048
     Dates: start: 20060221, end: 20060314
  3. ARTANE [Concomitant]
     Dates: start: 20030701, end: 20060314
  4. VEGETAMIN A [Concomitant]
     Route: 048
     Dates: start: 19970512, end: 20060314
  5. ROHYPNOL [Concomitant]
     Route: 048
     Dates: start: 19970512, end: 20060314
  6. AMOBAN [Concomitant]
     Route: 048
     Dates: start: 20031021, end: 20060314
  7. SOMELIN [Concomitant]
     Route: 048
     Dates: start: 20040326, end: 20060314
  8. MAGNESIUM OXIDE [Concomitant]
     Route: 048
     Dates: start: 20040326, end: 20060314

REACTIONS (3)
  - AGGRESSION [None]
  - FEAR [None]
  - HOMICIDAL IDEATION [None]
